FAERS Safety Report 11845133 (Version 2)
Quarter: 2016Q1

REPORT INFORMATION
  Report Type: Spontaneous
  Country: US (occurrence: US)
  Receive Date: 20151217
  Receipt Date: 20160309
  Transmission Date: 20160526
  Serious: No
  Sender: FDA-Public Use
  Company Number: US-LEO PHARMA-239085

PATIENT
  Age: 59 Year
  Sex: Female

DRUGS (1)
  1. PICATO [Suspect]
     Active Substance: INGENOL MEBUTATE
     Indication: PRECANCEROUS SKIN LESION
     Route: 061
     Dates: start: 20151207

REACTIONS (9)
  - Application site erythema [Not Recovered/Not Resolved]
  - Ocular hyperaemia [Recovered/Resolved]
  - Application site pain [Recovered/Resolved]
  - Erythema [Recovered/Resolved]
  - Application site swelling [Recovered/Resolved]
  - Drug ineffective [Not Recovered/Not Resolved]
  - Application site pain [Recovered/Resolved]
  - Drug administered at inappropriate site [Unknown]
  - Swelling [Recovered/Resolved]

NARRATIVE: CASE EVENT DATE: 20151207
